FAERS Safety Report 9452327 (Version 2)
Quarter: 2013Q4

REPORT INFORMATION
  Report Type: Spontaneous
  Country: CA (occurrence: CA)
  Receive Date: 20130812
  Receipt Date: 20131204
  Transmission Date: 20140711
  Serious: Yes (Hospitalization, Other)
  Sender: FDA-Public Use
  Company Number: CA-ELI_LILLY_AND_COMPANY-CA201308000436

PATIENT
  Age: 64 Year
  Sex: Female
  Weight: 69.84 kg

DRUGS (34)
  1. CYMBALTA [Suspect]
     Indication: PAIN
     Dosage: UNK, QD
     Route: 048
     Dates: start: 20091112, end: 20091114
  2. ACIDOPHILUS [Suspect]
  3. ALENDRONATE [Suspect]
  4. ALLERTIN [Suspect]
  5. APO-K [Suspect]
     Dosage: 600 MG, UNKNOWN
     Route: 065
  6. APO-SULFATRIM [Suspect]
  7. ATIVAN [Suspect]
  8. B100 COMPLEX [Suspect]
  9. BACLOFEN [Suspect]
  10. CALCIUM [Suspect]
  11. CELLCEPT [Suspect]
  12. DOCUSATE SODIUM [Suspect]
  13. ELECTROLYTE [Suspect]
  14. FUROSEMIDE [Suspect]
  15. HYDROMORPHONE [Suspect]
  16. IMMUNOGLOBULIN HUMAN ANTIRABIES [Suspect]
     Dosage: UNK, UNKNOWN
     Route: 042
  17. IMODIUM [Suspect]
  18. LYRICA [Suspect]
  19. MELATONIN [Suspect]
  20. MULTIVITAMINS [Suspect]
  21. NASONEX [Suspect]
  22. NORTRIPTYLINE [Suspect]
  23. NOVO-HYDRAZIDE [Suspect]
  24. OMEGA 3 [Suspect]
  25. PREDNISONE [Suspect]
  26. SENNOSIDE /00571901/ [Suspect]
  27. SENOKOT [Suspect]
  28. TIZANIDINE [Suspect]
  29. VITAMIN B12 [Suspect]
  30. VITAMIN C [Suspect]
  31. VITAMIN D [Suspect]
  32. WARFARIN [Suspect]
  33. ZANTAC [Suspect]
  34. ZOPICLONE [Suspect]

REACTIONS (4)
  - Coma [Recovered/Resolved]
  - Pneumonia aspiration [Recovered/Resolved]
  - Gastrooesophageal reflux disease [Recovered/Resolved]
  - Somnolence [Recovered/Resolved]
